FAERS Safety Report 24805308 (Version 1)
Quarter: 2025Q1

REPORT INFORMATION
  Report Type: Spontaneous
  Country: US (occurrence: US)
  Receive Date: 20250103
  Receipt Date: 20250103
  Transmission Date: 20250408
  Serious: Yes (Hospitalization, Other)
  Sender: ANI
  Company Number: US-ANIPHARMA-2025-US-000021

PATIENT
  Age: 28 Year
  Sex: Male

DRUGS (6)
  1. ANASTROZOLE [Suspect]
     Active Substance: ANASTROZOLE
     Indication: Product used for unknown indication
  2. TESTOSTERONE CYPIONATE [Suspect]
     Active Substance: TESTOSTERONE CYPIONATE
     Indication: Product used for unknown indication
  3. TESTOSTERONE ENANTHATE [Suspect]
     Active Substance: TESTOSTERONE ENANTHATE
     Indication: Product used for unknown indication
  4. LIOTHYRONINE [Suspect]
     Active Substance: LIOTHYRONINE
     Indication: Product used for unknown indication
  5. CLOMIPHENE [Suspect]
     Active Substance: CLOMIPHENE
     Indication: Product used for unknown indication
  6. CLENBUTEROL [Suspect]
     Active Substance: CLENBUTEROL
     Indication: Product used for unknown indication

REACTIONS (3)
  - Cardiac failure [Recovered/Resolved]
  - Cardiogenic shock [Recovered/Resolved]
  - Hypothalamo-pituitary disorder [Not Recovered/Not Resolved]
